FAERS Safety Report 10622131 (Version 1)
Quarter: 2014Q4

REPORT INFORMATION
  Report Type: Spontaneous
  Country: US (occurrence: None)
  Receive Date: 20141201
  Receipt Date: 20141201
  Transmission Date: 20150529
  Serious: Yes (Hospitalization)
  Sender: FDA-Public Use
  Company Number: None

PATIENT
  Age: 65 Year
  Sex: Male
  Weight: 75.2 kg

DRUGS (2)
  1. ABIRATERONE [Suspect]
     Active Substance: ABIRATERONE
     Indication: PROSTATE CANCER
     Route: 048
     Dates: start: 20140829, end: 20141104
  2. DASATINIB [Suspect]
     Active Substance: DASATINIB
     Dates: start: 20140828, end: 20141104

REACTIONS (12)
  - Speech disorder [None]
  - Muscle rupture [None]
  - Cervical vertebral fracture [None]
  - Fall [None]
  - Neck pain [None]
  - Musculoskeletal pain [None]
  - Feeding disorder [None]
  - Aspiration [None]
  - Paraesthesia [None]
  - Muscle oedema [None]
  - Muscle strain [None]
  - Skull fractured base [None]

NARRATIVE: CASE EVENT DATE: 20141105
